FAERS Safety Report 5764774-X (Version None)
Quarter: 2008Q2

REPORT INFORMATION
  Report Type: 
  Country: None (occurrence: None)
  Receive Date: 20080611
  Receipt Date: 20080606
  Transmission Date: 20081010
  Serious: Yes (Other)
  Sender: FDA-Public Use
  Company Number: PHHY2008JP03618

PATIENT
  Age: 64 Year
  Sex: Female

DRUGS (7)
  1. LUDIOMIL [Suspect]
     Indication: DEPRESSION
     Dosage: 25 MG/DAY
     Route: 048
     Dates: start: 20060701
  2. LUDIOMIL [Suspect]
     Dosage: 100 MG/DAY
     Route: 048
  3. LUDIOMIL [Suspect]
     Dosage: 50 MG/DAY
     Route: 048
  4. LUDIOMIL [Suspect]
     Dosage: 25 MG/DAY
     Route: 048
  5. MUCOSTA [Concomitant]
     Dosage: 300 MG/DAY
     Route: 048
     Dates: start: 20060701
  6. THYRADIN [Concomitant]
     Dosage: 1 MG DAILY
     Route: 048
     Dates: start: 20060701
  7. DESYREL [Concomitant]
     Dosage: 150 MG/DAY
     Route: 048
     Dates: start: 20060701

REACTIONS (2)
  - CONVERSION DISORDER [None]
  - HALLUCINATION [None]
